FAERS Safety Report 6382412-2 (Version None)
Quarter: 2009Q3

REPORT INFORMATION
  Report Type: 
  Country: None (occurrence: None)
  Receive Date: 20090930
  Receipt Date: 20090918
  Transmission Date: 20100115
  Serious: Yes (Death)
  Sender: FDA-Public Use
  Company Number: JP-ABBOTT-09P-087-0597591-00

PATIENT
  Age: 76 Year
  Sex: Male

DRUGS (3)
  1. LEUPLIN SR FOR INJECTION 11.25 MG [Suspect]
     Indication: PROSTATE CANCER STAGE IV
     Route: 058
     Dates: start: 20080812, end: 20090421
  2. CASODEX [Concomitant]
     Indication: PROSTATE CANCER STAGE IV
     Route: 048
     Dates: end: 20090706
  3. FASTIC [Concomitant]
     Indication: DIABETES MELLITUS
     Route: 048
     Dates: start: 20081216, end: 20090706

REACTIONS (1)
  - CEREBRAL HAEMORRHAGE [None]
